FAERS Safety Report 14680240 (Version 8)
Quarter: 2018Q4

REPORT INFORMATION
  Report Type: Spontaneous
  Country: JP (occurrence: JP)
  Receive Date: 20180326
  Receipt Date: 20181223
  Transmission Date: 20190204
  Serious: Yes (Hospitalization, Other)
  Sender: FDA-Public Use
  Company Number: JP-009507513-1705JPN001857J

PATIENT
  Age: 62 Year
  Sex: Female
  Weight: 49 kg

DRUGS (5)
  1. KEYTRUDA [Suspect]
     Active Substance: PEMBROLIZUMAB
     Indication: SUPERFICIAL SPREADING MELANOMA STAGE II
     Dosage: 2 MG/KG, Q3W
     Route: 041
     Dates: start: 20170425, end: 20170626
  2. TRAMETINIB [Suspect]
     Active Substance: TRAMETINIB
     Indication: SUPERFICIAL SPREADING MELANOMA STAGE II
     Dosage: 2 MG, QD
     Route: 048
     Dates: start: 20171011
  3. LOXOPROFEN [Suspect]
     Active Substance: LOXOPROFEN
     Indication: PYREXIA
     Dosage: 60 MILLIGRAM, TID
     Route: 048
     Dates: start: 20171013, end: 20171018
  4. DABRAFENIB [Suspect]
     Active Substance: DABRAFENIB
     Indication: SUPERFICIAL SPREADING MELANOMA STAGE II
     Dosage: 150 MILLIGRAM, BID
     Route: 048
     Dates: start: 20171011
  5. KEYTRUDA [Suspect]
     Active Substance: PEMBROLIZUMAB
     Dosage: 2 MILLIGRAM/KILOGRAM, Q3W
     Route: 041
     Dates: start: 20170724, end: 20170907

REACTIONS (8)
  - Malignant neoplasm progression [Recovering/Resolving]
  - Cellulitis [Recovered/Resolved]
  - Muscle oedema [Recovering/Resolving]
  - Haemophagocytic lymphohistiocytosis [Recovering/Resolving]
  - Drug ineffective [Unknown]
  - Gastritis [Not Recovered/Not Resolved]
  - Eczema [Recovered/Resolved]
  - Pyrexia [Recovered/Resolved]

NARRATIVE: CASE EVENT DATE: 20170512
